FAERS Safety Report 11486002 (Version 1)
Quarter: 2015Q3

REPORT INFORMATION
  Report Type: Spontaneous
  Country: US (occurrence: US)
  Receive Date: 20150909
  Receipt Date: 20150909
  Transmission Date: 20151125
  Serious: Yes (Other)
  Sender: FDA-Public Use
  Company Number: US-PFIZER INC-2015296510

PATIENT
  Age: 84 Year
  Sex: Female
  Weight: 68 kg

DRUGS (4)
  1. AMLODIPINE BESILATE [Suspect]
     Active Substance: AMLODIPINE BESYLATE
     Indication: HYPERTENSION
     Dosage: 10 MG, 1X/DAY
     Route: 048
     Dates: start: 2010
  2. ESOMEPRAZOLE [Concomitant]
     Active Substance: ESOMEPRAZOLE
     Indication: HIATUS HERNIA
     Dosage: 40 MG, UNK
  3. BENADRYL [Concomitant]
     Active Substance: DIPHENHYDRAMINE HYDROCHLORIDE
     Indication: PRURITUS
     Dosage: 1 DF, 1X/DAY, IN MORNING
  4. TYLENOL [Concomitant]
     Active Substance: ACETAMINOPHEN
     Dosage: 4 DF, 1X/DAY, TWO IN MORNING, TWO AT NIGHT

REACTIONS (10)
  - Feeling hot [Unknown]
  - Mouth swelling [Unknown]
  - Lip swelling [Unknown]
  - Peripheral swelling [Not Recovered/Not Resolved]
  - Erythema [Unknown]
  - Heart rate irregular [Unknown]
  - Pain in extremity [Unknown]
  - Malaise [Unknown]
  - Cellulitis [Unknown]
  - Pruritus [Unknown]

NARRATIVE: CASE EVENT DATE: 2015
